FAERS Safety Report 24224796 (Version 1)
Quarter: 2024Q3

REPORT INFORMATION
  Report Type: Spontaneous
  Country: SG (occurrence: SG)
  Receive Date: 20240819
  Receipt Date: 20240819
  Transmission Date: 20241016
  Serious: Yes (Death)
  Sender: BEIGENE
  Company Number: SG-BEIGENE-BGN-2024-012709

PATIENT

DRUGS (1)
  1. BRUKINSA [Suspect]
     Active Substance: ZANUBRUTINIB
     Indication: Chronic lymphocytic leukaemia
     Dosage: 80 MILLIGRAM, BID

REACTIONS (1)
  - Death [Fatal]
